FAERS Safety Report 6721056-7 (Version None)
Quarter: 2010Q2

REPORT INFORMATION
  Report Type: 
  Country: None (occurrence: None)
  Receive Date: 20100510
  Receipt Date: 20100429
  Transmission Date: 20101027
  Serious: Yes (Other)
  Sender: FDA-Public Use
  Company Number: 1000013560

PATIENT
  Age: 3 Month
  Sex: Male

DRUGS (1)
  1. ESCITALOPRAM OXALATE [Suspect]
     Dosage: 20 MG (20 MG, 1 IN 1) D, TRANSPLACENTAL; 20 MG (20 MG, 1 IN 1 D), TRANSMAMMARY
     Route: 064

REACTIONS (6)
  - CRYING [None]
  - DRUG EXPOSURE VIA BREAST MILK [None]
  - MATERNAL DRUGS AFFECTING FOETUS [None]
  - NEONATAL DISORDER [None]
  - RAPID EYE MOVEMENTS SLEEP ABNORMAL [None]
  - RESTLESSNESS [None]
